FAERS Safety Report 5749540-3 (Version None)
Quarter: 2008Q2

REPORT INFORMATION
  Report Type: 
  Country: None (occurrence: None)
  Receive Date: 20080522
  Receipt Date: 20080522
  Transmission Date: 20081010
  Serious: Yes (Other)
  Sender: FDA-Public Use
  Company Number: None

PATIENT
  Age: 10 Year
  Sex: Male
  Weight: 56.6996 kg

DRUGS (2)
  1. ADVAIR DISKUS 250/50 [Suspect]
     Indication: ASTHMA
     Dosage: 2 TIMES PER DAY
     Dates: start: 20070915, end: 20080215
  2. ADVAIR DISKUS 100/50 [Suspect]
     Indication: ASTHMA
     Dosage: (DURATION: 4 YEARS PRIOR)

REACTIONS (7)
  - ADRENAL DISORDER [None]
  - ANXIETY [None]
  - FOOT FRACTURE [None]
  - LEARNING DISORDER [None]
  - POOR QUALITY SLEEP [None]
  - SLEEP DISORDER [None]
  - WEIGHT INCREASED [None]
